FAERS Safety Report 6298990-8 (Version None)
Quarter: 2009Q3

REPORT INFORMATION
  Report Type: 
  Country: None (occurrence: None)
  Receive Date: 20090804
  Receipt Date: 20090720
  Transmission Date: 20100115
  Serious: Yes (Hospitalization)
  Sender: FDA-Public Use
  Company Number: 230421K09BRA

PATIENT
  Sex: Female

DRUGS (2)
  1. REBIF [Suspect]
     Indication: SECONDARY PROGRESSIVE MULTIPLE SCLEROSIS
     Dosage: 44 MCG, 3 IN 1 WEEKS
     Dates: start: 20080505, end: 20090325
  2. AZATHIOPRINE [Concomitant]

REACTIONS (10)
  - ALOPECIA [None]
  - ANAEMIA [None]
  - DIZZINESS [None]
  - INSOMNIA [None]
  - ONYCHOCLASIS [None]
  - PAIN [None]
  - PYREXIA [None]
  - SERUM FERRITIN INCREASED [None]
  - THROMBOCYTOPENIA [None]
  - TRANSFERRIN SATURATION DECREASED [None]
